FAERS Safety Report 9467007 (Version 3)
Quarter: 2013Q3

REPORT INFORMATION
  Report Type: Spontaneous
  Country: US (occurrence: US)
  Receive Date: 20130820
  Receipt Date: 20130912
  Transmission Date: 20140515
  Serious: Yes (Death, Hospitalization)
  Sender: FDA-Public Use
  Company Number: US-GLAXOSMITHKLINE-A1002099A

PATIENT
  Age: 51 Year
  Sex: Male
  Weight: 133.6 kg

DRUGS (1)
  1. AVANDIA [Suspect]
     Indication: DIABETES MELLITUS
     Dosage: 4MG PER DAY
     Route: 048
     Dates: start: 20061005, end: 20080613

REACTIONS (5)
  - Cardiac failure congestive [Unknown]
  - Renal failure [Unknown]
  - Atrial fibrillation [Unknown]
  - Cardiac assistance device user [Unknown]
  - Septic shock [Fatal]
